FAERS Safety Report 18186087 (Version 1)
Quarter: 2020Q3

REPORT INFORMATION
  Report Type: Spontaneous
  Country: US (occurrence: US)
  Receive Date: 20200824
  Receipt Date: 20200824
  Transmission Date: 20201103
  Serious: No
  Sender: FDA-Public Use
  Company Number: US-SHIRE-US202026875

PATIENT
  Sex: Female
  Weight: 47 kg

DRUGS (1)
  1. LIALDA [Suspect]
     Active Substance: MESALAMINE
     Indication: COLITIS ULCERATIVE
     Dosage: 1.2 GRAM
     Route: 065

REACTIONS (4)
  - Dry mouth [Unknown]
  - Condition aggravated [Unknown]
  - Inability to afford medication [Unknown]
  - Stomatitis [Unknown]
